FAERS Safety Report 16533362 (Version 1)
Quarter: 2019Q3

REPORT INFORMATION
  Report Type: Spontaneous
  Country: None (occurrence: US)
  Receive Date: 20190704
  Receipt Date: 20190704
  Transmission Date: 20191004
  Serious: No
  Sender: FDA-Public Use
  Company Number: US-APTEVO BIOTHERAPEUTICS LLC-19FX00007SP

PATIENT

DRUGS (2)
  1. IXINITY [Suspect]
     Active Substance: COAGULATION FACTOR IX RECOMBINANT HUMAN
     Indication: FACTOR IX DEFICIENCY
     Dosage: 1400 UNIT, 2/WEEK
  2. LITHIUM. [Concomitant]
     Active Substance: LITHIUM
     Indication: BIPOLAR DISORDER

REACTIONS (4)
  - Epistaxis [Recovered/Resolved]
  - Haemarthrosis [Recovered/Resolved]
  - Gingival bleeding [Recovered/Resolved]
  - Haemorrhage [Recovered/Resolved]
